FAERS Safety Report 7070483-X (Version None)
Quarter: 2010Q4

REPORT INFORMATION
  Report Type: 
  Country: None (occurrence: None)
  Receive Date: 20101029
  Receipt Date: 20101021
  Transmission Date: 20110411
  Serious: Yes (Other)
  Sender: FDA-Public Use
  Company Number: US-SHIRE-ALL1-2010-05475

PATIENT
  Sex: Male
  Weight: 79.365 kg

DRUGS (12)
  1. VYVANSE [Suspect]
     Indication: ATTENTION DEFICIT/HYPERACTIVITY DISORDER
     Dosage: 20 MG, 1X/DAY:QD
     Route: 048
     Dates: start: 20090201, end: 20090101
  2. VYVANSE [Suspect]
     Dosage: 30 MG, 1X/DAY:QD
     Route: 048
     Dates: start: 20090101, end: 20090101
  3. VYVANSE [Suspect]
     Dosage: 40 MG, 1X/DAY:QD
     Route: 048
     Dates: start: 20090101, end: 20090101
  4. VYVANSE [Suspect]
     Dosage: 50 MG, 1X/DAY:QD
     Route: 048
     Dates: start: 20090101, end: 20090101
  5. VYVANSE [Suspect]
     Dosage: 60 MG, 1X/DAY:QD
     Route: 048
     Dates: start: 20090101
  6. VYVANSE [Suspect]
     Dosage: 50 MG, 1X/DAY:QD
     Route: 048
     Dates: end: 20100101
  7. VYVANSE [Suspect]
     Dosage: 40 MG, 1X/DAY:QD
     Route: 048
     Dates: start: 20100101
  8. ATIVAN [Concomitant]
     Indication: ANXIETY
     Dosage: 1 MG TABLET IN MORNING, 1X/DAY:QD
     Route: 048
     Dates: start: 20101001
  9. ATIVAN [Concomitant]
     Dosage: .5 MG TABLET AT NIGHT, 1X/DAY:QD
     Route: 048
     Dates: start: 20101001
  10. LUVOX [Concomitant]
     Indication: OBSESSIVE-COMPULSIVE DISORDER
     Dosage: 50 MG, 1X/DAY:QD
     Route: 048
  11. LAMOTRIGINE [Concomitant]
     Indication: DEPRESSION
     Dosage: 50 MG (1/2 100 MG TABLET), 1X/DAY:QD
     Route: 048
     Dates: start: 20090101
  12. XANAX [Concomitant]
     Indication: ANXIETY
     Dosage: UNK MG, 1X/DAY:QD
     Route: 048
     Dates: end: 20101001

REACTIONS (5)
  - DRUG DEPENDENCE [None]
  - DRUG EFFECT DECREASED [None]
  - DRUG EFFECT INCREASED [None]
  - THERAPEUTIC RESPONSE UNEXPECTED [None]
  - WEIGHT DECREASED [None]
